FAERS Safety Report 24899207 (Version 1)
Quarter: 2025Q1

REPORT INFORMATION
  Report Type: Spontaneous
  Country: US (occurrence: None)
  Receive Date: 20250128
  Receipt Date: 20250128
  Transmission Date: 20250408
  Serious: Yes (Life-Threatening, Disabling, Other)
  Sender: FDA-CTU
  Company Number: None

PATIENT
  Age: 33 Year
  Sex: Female
  Weight: 45 kg

DRUGS (3)
  1. PRISTIQ EXTENDED-RELEASE [Suspect]
     Active Substance: DESVENLAFAXINE SUCCINATE
     Indication: Obsessive-compulsive disorder
     Dosage: OTHER QUANTITY : 1 TABLET(S);?FREQUENCY : DAILY;?
     Route: 048
     Dates: start: 20170201, end: 20240515
  2. CORLANOR [Concomitant]
     Active Substance: IVABRADINE HYDROCHLORIDE
  3. KLONOPIN [Concomitant]
     Active Substance: CLONAZEPAM

REACTIONS (18)
  - Therapy change [None]
  - Drug ineffective [None]
  - Therapy interrupted [None]
  - Withdrawal syndrome [None]
  - Dizziness [None]
  - Fatigue [None]
  - Nausea [None]
  - Headache [None]
  - Irritability [None]
  - Agitation [None]
  - Restlessness [None]
  - Panic attack [None]
  - Anxiety [None]
  - Weight decreased [None]
  - Suicidal ideation [None]
  - Akathisia [None]
  - Bedridden [None]
  - Asthenia [None]

NARRATIVE: CASE EVENT DATE: 20240515
